FAERS Safety Report 20190174 (Version 2)
Quarter: 2022Q1

REPORT INFORMATION
  Report Type: Spontaneous
  Country: US (occurrence: US)
  Receive Date: 20211215
  Receipt Date: 20220214
  Transmission Date: 20220423
  Serious: No
  Sender: FDA-Public Use
  Company Number: US-PFIZER INC-202101457997

PATIENT
  Age: 57 Year
  Sex: Male

DRUGS (4)
  1. XELJANZ [Suspect]
     Active Substance: TOFACITINIB CITRATE
     Indication: Colitis ulcerative
     Dosage: 10 MG, 2X/DAY
     Route: 048
     Dates: start: 20210918
  2. XELJANZ [Suspect]
     Active Substance: TOFACITINIB CITRATE
     Dosage: 10 MG, DAILY
     Route: 048
     Dates: start: 20211108
  3. MESALAMINE [Suspect]
     Active Substance: MESALAMINE
  4. METAMUCIL [Suspect]
     Active Substance: PLANTAGO SEED
     Dosage: UNK

REACTIONS (17)
  - Memory impairment [Unknown]
  - Bowel movement irregularity [Recovering/Resolving]
  - Back pain [Unknown]
  - Abdominal pain upper [Unknown]
  - Tenderness [Unknown]
  - Hernia pain [Unknown]
  - Discomfort [Unknown]
  - Pollakiuria [Unknown]
  - Viral infection [Recovered/Resolved]
  - Joint swelling [Unknown]
  - Dizziness [Unknown]
  - Hypertonic bladder [Unknown]
  - Fatigue [Unknown]
  - Abdominal discomfort [Unknown]
  - Flatulence [Unknown]
  - Anxiety [Unknown]
  - Nasopharyngitis [Unknown]

NARRATIVE: CASE EVENT DATE: 20210101
